FAERS Safety Report 7959159-1 (Version None)
Quarter: 2011Q4

REPORT INFORMATION
  Report Type: 
  Country: None (occurrence: None)
  Receive Date: 20111130
  Receipt Date: 20111123
  Transmission Date: 20120403
  Serious: Yes (Hospitalization, Other)
  Sender: FDA-Public Use
  Company Number: ACO_27350_2011

PATIENT
  Age: 51 Year
  Sex: Male

DRUGS (4)
  1. AMPYRA [Suspect]
     Indication: GAIT DISTURBANCE
     Dosage: 10 MB, Q 12 HRS ; 10 MG Q 12 HRS
     Dates: start: 20110101
  2. AMPYRA [Suspect]
     Indication: GAIT DISTURBANCE
     Dosage: 10 MB, Q 12 HRS ; 10 MG Q 12 HRS
     Dates: start: 20100513, end: 20110101
  3. REBIF [Concomitant]
  4. METHYLPREDNISOLONE [Suspect]
     Indication: MULTIPLE SCLEROSIS RELAPSE
     Dosage: INTRAVENOUS
     Route: 042

REACTIONS (2)
  - MULTIPLE SCLEROSIS RELAPSE [None]
  - BLOOD GLUCOSE INCREASED [None]
